FAERS Safety Report 15477440 (Version 1)
Quarter: 2018Q4

REPORT INFORMATION
  Report Type: Spontaneous
  Country: US (occurrence: US)
  Receive Date: 20181001
  Receipt Date: 20181001
  Transmission Date: 20190205
  Serious: No
  Sender: FDA-Public Use
  Company Number: None

PATIENT
  Age: 48 Year
  Sex: Male

DRUGS (1)
  1. IMATINIB MESYLATE 400MG [Suspect]
     Active Substance: IMATINIB MESYLATE
     Indication: CHRONIC MYELOID LEUKAEMIA
     Route: 048
     Dates: start: 20170926

REACTIONS (4)
  - Rash [None]
  - Rash erythematous [None]
  - Exposure to toxic agent [None]
  - Dry skin [None]

NARRATIVE: CASE EVENT DATE: 20171005
